FAERS Safety Report 22376185 (Version 1)
Quarter: 2023Q2

REPORT INFORMATION
  Report Type: Spontaneous
  Country: CA (occurrence: CA)
  Receive Date: 20230527
  Receipt Date: 20230527
  Transmission Date: 20230722
  Serious: Yes (Other)
  Sender: FDA-Public Use
  Company Number: None

PATIENT
  Age: 47 Year
  Sex: Female

DRUGS (2)
  1. METHOTREXATE [Suspect]
     Active Substance: METHOTREXATE
     Indication: Dermatitis atopic
     Dosage: 1 EVERY 1 WEEKS
  2. VARICELLA-ZOSTER VIRUS STRAIN OKA/MERCK LIVE ANTIGEN [Concomitant]
     Active Substance: VARICELLA-ZOSTER VIRUS STRAIN OKA/MERCK LIVE ANTIGEN
     Dosage: FREQUENCY: TOTAL

REACTIONS (6)
  - Dermatitis [Unknown]
  - Drug ineffective for unapproved indication [Unknown]
  - Erythema [Unknown]
  - Skin abrasion [Unknown]
  - Skin haemorrhage [Unknown]
  - Therapeutic product effect incomplete [Unknown]
